FAERS Safety Report 19476611 (Version 2)
Quarter: 2022Q1

REPORT INFORMATION
  Report Type: Report from Study
  Country: KR (occurrence: KR)
  Receive Date: 20210630
  Receipt Date: 20220303
  Transmission Date: 20220423
  Serious: Yes (Hospitalization)
  Sender: FDA-Public Use
  Company Number: KR-ELI_LILLY_AND_COMPANY-KR202106013275

PATIENT
  Age: 56 Year
  Sex: Female
  Weight: 63 kg

DRUGS (12)
  1. OLUMIANT [Suspect]
     Active Substance: BARICITINIB
     Indication: Rheumatoid arthritis
     Dosage: 4 MG, DAILY
     Route: 048
     Dates: start: 20201103, end: 20210108
  2. OLUMIANT [Suspect]
     Active Substance: BARICITINIB
     Dosage: 4 MG, DAILY
     Route: 048
     Dates: start: 20210215
  3. HYDROXYCHLOROQUINE SULFATE [Concomitant]
     Active Substance: HYDROXYCHLOROQUINE SULFATE
     Indication: Rheumatoid arthritis
     Dosage: UNK UNK, UNKNOWN
     Route: 065
     Dates: start: 20190806
  4. EZETIMIBE\ROSUVASTATIN [Concomitant]
     Active Substance: EZETIMIBE\ROSUVASTATIN
     Indication: Prophylaxis
     Dosage: UNK, UNKNOWN
     Route: 065
     Dates: start: 20200414
  5. PANTOPRAZOLE SODIUM [Concomitant]
     Active Substance: PANTOPRAZOLE SODIUM
     Indication: Prophylaxis
     Dosage: UNK, UNKNOWN
     Route: 065
     Dates: start: 20160523
  6. CELEBREX [Concomitant]
     Active Substance: CELECOXIB
     Indication: Rheumatoid arthritis
     Dosage: UNK, UNKNOWN
     Route: 065
     Dates: start: 20201201
  7. CELEBREX [Concomitant]
     Active Substance: CELECOXIB
     Indication: Cellulitis
  8. ACETAMINOPHEN\TRAMADOL [Concomitant]
     Active Substance: ACETAMINOPHEN\TRAMADOL
     Indication: Rheumatoid arthritis
     Dosage: UNK, UNKNOWN
     Route: 065
     Dates: start: 20201201
  9. PREDNISOLONE [Concomitant]
     Active Substance: PREDNISOLONE
     Indication: Rheumatoid arthritis
     Dosage: UNK, UNKNOWN
     Route: 065
     Dates: start: 20201201
  10. BANAN [Concomitant]
     Active Substance: CEFPODOXIME PROXETIL
     Indication: Cellulitis
     Dosage: UNK, UNKNOWN
     Route: 065
     Dates: start: 20200114, end: 20210202
  11. MEDICA CEFTRIAXONE [Concomitant]
     Indication: Cellulitis
     Dosage: UNK, UNKNOWN
     Route: 065
     Dates: start: 20210201, end: 20210201
  12. LEVOTHYROXINE SODIUM [Concomitant]
     Active Substance: LEVOTHYROXINE SODIUM
     Indication: Thyroidectomy
     Dosage: UNK UNK, UNKNOWN
     Route: 065
     Dates: start: 200607

REACTIONS (1)
  - Cellulitis [Recovered/Resolved]

NARRATIVE: CASE EVENT DATE: 20210203
